FAERS Safety Report 17855142 (Version 1)
Quarter: 2020Q2

REPORT INFORMATION
  Report Type: Spontaneous
  Country: US (occurrence: US)
  Receive Date: 20200602
  Receipt Date: 20200602
  Transmission Date: 20200714
  Serious: No
  Sender: FDA-Public Use
  Company Number: None

PATIENT
  Age: 71 Year
  Sex: Female

DRUGS (1)
  1. NUCALA [Suspect]
     Active Substance: MEPOLIZUMAB
     Dosage: OTHER FREQUENCY:OTHER;?
     Route: 058
     Dates: start: 201912

REACTIONS (5)
  - Therapy interrupted [None]
  - Drug ineffective [None]
  - Product prescribing issue [None]
  - Transcription medication error [None]
  - Dyspnoea [None]

NARRATIVE: CASE EVENT DATE: 20200602
